FAERS Safety Report 23071184 (Version 2)
Quarter: 2023Q4

REPORT INFORMATION
  Report Type: Report from Study
  Country: CA (occurrence: CA)
  Receive Date: 20231016
  Receipt Date: 20231118
  Transmission Date: 20240110
  Serious: Yes (Hospitalization)
  Sender: FDA-Public Use
  Company Number: CA-Eisai-EC-2023-150760

PATIENT
  Age: 55 Year
  Sex: Male

DRUGS (4)
  1. LENVIMA [Suspect]
     Active Substance: LENVATINIB
     Indication: Renal cell carcinoma
     Route: 048
     Dates: start: 20230918, end: 20230919
  2. LENVIMA [Suspect]
     Active Substance: LENVATINIB
     Dosage: 10 MG ON ONE DAY AND 4 MG THE NEXT
     Route: 048
     Dates: start: 20230920, end: 202310
  3. EVEROLIMUS [Concomitant]
     Active Substance: EVEROLIMUS
  4. AMLODIPINE [Concomitant]
     Active Substance: AMLODIPINE BESYLATE

REACTIONS (1)
  - Blood pressure increased [Unknown]

NARRATIVE: CASE EVENT DATE: 20230901
